FAERS Safety Report 7016135-3 (Version None)
Quarter: 2010Q3

REPORT INFORMATION
  Report Type: 
  Country: None (occurrence: None)
  Receive Date: 20100927
  Receipt Date: 20100924
  Transmission Date: 20110219
  Serious: Yes (Hospitalization)
  Sender: FDA-Public Use
  Company Number: GB-TEVA-249580ISR

PATIENT
  Age: 45 Year
  Sex: Female

DRUGS (6)
  1. TAMOXIFEN CITRATE [Suspect]
     Indication: BREAST CANCER METASTATIC
     Route: 048
  2. ACETAZOLAMIDE [Suspect]
     Indication: BENIGN INTRACRANIAL HYPERTENSION
  3. ANASTROZOLE [Suspect]
     Indication: BREAST CANCER
  4. PAMIDRONIC ACID [Suspect]
     Indication: BONE PAIN
  5. EXEMESTANE [Suspect]
     Indication: BREAST CANCER
  6. GOSERELIN [Suspect]
     Indication: BREAST CANCER

REACTIONS (13)
  - ANAEMIA [None]
  - BENIGN INTRACRANIAL HYPERTENSION [None]
  - BONE PAIN [None]
  - DIPLOPIA [None]
  - DRUG INTOLERANCE [None]
  - FATIGUE [None]
  - HEADACHE [None]
  - METASTASES TO BONE [None]
  - METASTASES TO LYMPH NODES [None]
  - NAUSEA [None]
  - OPTIC DISC DISORDER [None]
  - SPINAL FRACTURE [None]
  - VISION BLURRED [None]
